FAERS Safety Report 25345700 (Version 1)
Quarter: 2025Q2

REPORT INFORMATION
  Report Type: Spontaneous
  Country: FR (occurrence: FR)
  Receive Date: 20250522
  Receipt Date: 20250522
  Transmission Date: 20250716
  Serious: Yes (Life-Threatening, Other)
  Sender: AUROBINDO
  Company Number: FR-AFSSAPS-AN2025000591

PATIENT
  Age: 54 Year
  Sex: Male

DRUGS (4)
  1. RAMIPRIL [Interacting]
     Active Substance: RAMIPRIL
     Indication: Hypertension
     Dosage: 10 MILLIGRAM, ONCE A DAY
     Route: 048
     Dates: start: 2021, end: 20240704
  2. VILDAGLIPTIN [Interacting]
     Active Substance: VILDAGLIPTIN
     Indication: Hyperglycaemia
     Dosage: 1 DOSAGE FORM, ONCE A DAY
     Route: 048
     Dates: start: 20191108
  3. CERTICAN [Interacting]
     Active Substance: EVEROLIMUS
     Indication: Renal transplant
     Dosage: 1.75 MILLIGRAM, ONCE A DAY
     Route: 048
     Dates: start: 20240514, end: 20240618
  4. NEORAL [Interacting]
     Active Substance: CYCLOSPORINE
     Indication: Renal transplant
     Dosage: 150 MILLIGRAM, ONCE A DAY
     Route: 048
     Dates: start: 2022

REACTIONS (2)
  - Angioedema [Recovered/Resolved]
  - Drug interaction [Recovered/Resolved]

NARRATIVE: CASE EVENT DATE: 20240617
